FAERS Safety Report 5070538-5 (Version None)
Quarter: 2006Q3

REPORT INFORMATION
  Report Type: 
  Country: None (occurrence: None)
  Receive Date: 20060804
  Receipt Date: 20060728
  Transmission Date: 20061208
  Serious: Yes (Other)
  Sender: FDA-Public Use
  Company Number: PHBS2006CH11259

PATIENT
  Age: 42 Year
  Sex: Female

DRUGS (4)
  1. TEGRETOL [Suspect]
     Indication: EPILEPSY
     Dosage: 800 MG/DAY
     Route: 065
     Dates: start: 20010101
  2. RIVOTRIL [Suspect]
     Indication: EPILEPSY
     Dosage: UNK, PRN
     Route: 065
     Dates: start: 20010101
  3. KEPPRA [Concomitant]
     Indication: EPILEPSY
     Dosage: 2 G/DAY
     Route: 065
     Dates: start: 20010101
  4. TRILEPTAL [Concomitant]
     Indication: EPILEPSY
     Dosage: 900 MG/DAY
     Route: 065
     Dates: start: 19990101, end: 20010101

REACTIONS (3)
  - PERIODONTAL DESTRUCTION [None]
  - PERIODONTITIS [None]
  - SURGERY [None]
